FAERS Safety Report 16409043 (Version 2)
Quarter: 2019Q3

REPORT INFORMATION
  Report Type: Spontaneous
  Country: CZ (occurrence: CZ)
  Receive Date: 20190610
  Receipt Date: 20190917
  Transmission Date: 20191004
  Serious: Yes (Other)
  Sender: FDA-Public Use
  Company Number: CZ-ACCORD-131902

PATIENT
  Age: 65 Year
  Sex: Female

DRUGS (5)
  1. FLUOROURACIL. [Suspect]
     Active Substance: FLUOROURACIL
     Indication: COLORECTAL CANCER METASTATIC
     Dosage: Q2W (4 CYCLES)
     Dates: start: 201509
  2. VECTIBIX [Suspect]
     Active Substance: PANITUMUMAB
     Indication: COLORECTAL CANCER METASTATIC
     Dates: start: 201509
  3. FOLINIC ACID [Suspect]
     Active Substance: LEUCOVORIN
     Indication: COLORECTAL CANCER METASTATIC
     Route: 042
     Dates: start: 201509, end: 2016
  4. NADROPARIN [Concomitant]
     Active Substance: NADROPARIN
     Indication: HYPERTENSION
     Route: 058
  5. OXALIPLATIN. [Suspect]
     Active Substance: OXALIPLATIN
     Indication: COLORECTAL CANCER METASTATIC
     Dosage: IN FRAME OF FOLFOX4 REGIMEN
     Route: 042
     Dates: start: 201509, end: 201609

REACTIONS (10)
  - Herpes simplex [Unknown]
  - Haematotoxicity [Unknown]
  - Thrombocytopenia [Recovered/Resolved]
  - Epistaxis [Recovered/Resolved]
  - Rash [Recovered/Resolved]
  - Hypertrichosis [Recovered/Resolved]
  - Nausea [Recovered/Resolved]
  - Stomatitis [Unknown]
  - Anaemia [Recovered/Resolved]
  - Neuropathy peripheral [Unknown]

NARRATIVE: CASE EVENT DATE: 2015
